FAERS Safety Report 21963333 (Version 1)
Quarter: 2023Q1

REPORT INFORMATION
  Report Type: Spontaneous
  Country: KR (occurrence: None)
  Receive Date: 20230207
  Receipt Date: 20230207
  Transmission Date: 20230417
  Serious: Yes (Other)
  Sender: FDA-Public Use
  Company Number: KR-ROCHE-3279178

PATIENT
  Sex: Female

DRUGS (2)
  1. ALECTINIB [Suspect]
     Active Substance: ALECTINIB
     Indication: Product used for unknown indication
     Route: 065
  2. XALKORI [Concomitant]
     Active Substance: CRIZOTINIB

REACTIONS (2)
  - Metastases to central nervous system [Unknown]
  - Disease progression [Unknown]
